FAERS Safety Report 18889766 (Version 2)
Quarter: 2022Q1

REPORT INFORMATION
  Report Type: Report from Study
  Country: CO (occurrence: CO)
  Receive Date: 20210213
  Receipt Date: 20220113
  Transmission Date: 20220423
  Serious: Yes (Hospitalization)
  Sender: FDA-Public Use
  Company Number: CO-NOVARTISPH-PHHY2019CO161939

PATIENT
  Age: 61 Year
  Sex: Female
  Weight: 62 kg

DRUGS (5)
  1. KISQALI [Suspect]
     Active Substance: RIBOCICLIB
     Indication: Breast cancer metastatic
     Dosage: 600 MG, QD
     Route: 048
     Dates: start: 20190507, end: 202112
  2. FEMARA [Suspect]
     Active Substance: LETROZOLE
     Indication: Breast cancer
     Dosage: 2.5 MG, QD
     Route: 048
     Dates: start: 20190507, end: 202112
  3. LOSARTAN [Suspect]
     Active Substance: LOSARTAN
     Indication: Hypertension
     Dosage: 50 MG, Q12H (4 YEARS AND A HALF AGO)
     Route: 048
  4. CARVEDILOL [Suspect]
     Active Substance: CARVEDILOL
     Indication: Hypertension
     Dosage: 6.25 MG, QD (1 YEAR AGO)
     Route: 048
  5. HYDROCHLOROTHIAZIDE [Concomitant]
     Active Substance: HYDROCHLOROTHIAZIDE
     Indication: Hypertension
     Dosage: 25 MG, QD
     Route: 048

REACTIONS (18)
  - Myalgia [Unknown]
  - Anosmia [Recovering/Resolving]
  - Chills [Recovering/Resolving]
  - Influenza [Recovering/Resolving]
  - Malaise [Unknown]
  - Pulmonary mass [Unknown]
  - Diarrhoea [Recovering/Resolving]
  - Dry eye [Unknown]
  - Decreased appetite [Recovering/Resolving]
  - Headache [Recovering/Resolving]
  - Asthenia [Recovering/Resolving]
  - Fatigue [Unknown]
  - Inappropriate schedule of product administration [Unknown]
  - Blood triglycerides increased [Unknown]
  - Osteoporosis [Unknown]
  - Incorrect dose administered [Unknown]
  - Cough [Recovered/Resolved]
  - Influenza [Recovered/Resolved]

NARRATIVE: CASE EVENT DATE: 20201201
